FAERS Safety Report 5627602-9 (Version None)
Quarter: 2008Q1

REPORT INFORMATION
  Report Type: 
  Country: None (occurrence: None)
  Receive Date: 20080214
  Receipt Date: 20080214
  Transmission Date: 20080703
  Serious: Yes (Other)
  Sender: FDA-Public Use
  Company Number: None

PATIENT
  Age: 14 Year
  Sex: Female
  Weight: 55.7924 kg

DRUGS (1)
  1. AZITHROMYCIN [Suspect]
     Indication: PULMONARY CONGESTION
     Dosage: 250MG 2 FIRST DAY PO; 250MG 2-4 DAY PO
     Route: 048
     Dates: start: 20080212, end: 20080212

REACTIONS (2)
  - DYSPNOEA [None]
  - URTICARIA [None]
